FAERS Safety Report 9140395 (Version 1)
Quarter: 2013Q1

REPORT INFORMATION
  Report Type: Spontaneous
  Country: IT (occurrence: FR)
  Receive Date: 20130305
  Receipt Date: 20130305
  Transmission Date: 20140127
  Serious: Yes (Death)
  Sender: FDA-Public Use
  Company Number: FR-FRI-1000043042

PATIENT
  Age: 74 Year
  Sex: Female

DRUGS (10)
  1. NEBIVOLOL [Suspect]
     Indication: HYPERTENSION
     Dosage: 2.5 MG
     Route: 048
  2. DIFFU K [Concomitant]
     Route: 048
  3. FUROSEMIDE [Concomitant]
     Route: 048
  4. SPIRONOLACTONE [Concomitant]
     Route: 048
  5. ATACAND [Concomitant]
     Route: 048
  6. OMEPRAZOLE [Concomitant]
     Route: 048
  7. FLUINDIONE [Concomitant]
     Route: 048
  8. LEVOTHYROXINE SODIUM [Concomitant]
     Route: 048
  9. TAHOR [Concomitant]
     Route: 048
  10. STILNOX [Concomitant]
     Route: 048

REACTIONS (2)
  - Cardiogenic shock [Fatal]
  - Cardiac failure [Fatal]
